FAERS Safety Report 10207070 (Version 1)
Quarter: 2014Q2

REPORT INFORMATION
  Report Type: Spontaneous
  Country: US (occurrence: None)
  Receive Date: 20140527
  Receipt Date: 20140527
  Transmission Date: 20141212
  Serious: Yes (Hospitalization)
  Sender: FDA-Public Use
  Company Number: None

PATIENT
  Age: 20 Year
  Sex: Male

DRUGS (6)
  1. NAFCILLIN [Suspect]
     Indication: WOUND INFECTION
     Route: 042
     Dates: start: 20120419, end: 20120503
  2. DOCUSATE [Concomitant]
  3. METOPROLOL [Concomitant]
  4. VALPROIC ACID [Concomitant]
  5. OXYCODONE [Concomitant]
  6. IBUPROFEN [Concomitant]

REACTIONS (1)
  - Eosinophilia [None]
